FAERS Safety Report 11340228 (Version 1)
Quarter: 2015Q3

REPORT INFORMATION
  Report Type: Spontaneous
  Country: US (occurrence: None)
  Receive Date: 20150803
  Receipt Date: 20150803
  Transmission Date: 20151125
  Serious: Yes (Other)
  Sender: FDA-Public Use
  Company Number: None

PATIENT
  Age: 20 Year
  Sex: Male

DRUGS (1)
  1. CLONIDINE. [Suspect]
     Active Substance: CLONIDINE
     Indication: SLEEP DISORDER
     Dosage: 2 PILLS
     Route: 048
     Dates: start: 20150729, end: 20150729

REACTIONS (2)
  - Dyskinesia [None]
  - Dysphagia [None]

NARRATIVE: CASE EVENT DATE: 20150731
